FAERS Safety Report 20468598 (Version 1)
Quarter: 2022Q1

REPORT INFORMATION
  Report Type: Spontaneous
  Country: US (occurrence: None)
  Receive Date: 20220212
  Receipt Date: 20220212
  Transmission Date: 20220424
  Serious: No
  Sender: FDA-Public Use
  Company Number: None

PATIENT
  Age: 72 Year
  Sex: Male
  Weight: 102.6 kg

DRUGS (7)
  1. ERLEADA [Suspect]
     Active Substance: APALUTAMIDE
     Indication: Prostate cancer
     Dosage: FREQUENCY : DAILY;?
     Route: 048
     Dates: start: 20210721
  2. ACETAMINOPHEN [Concomitant]
     Active Substance: ACETAMINOPHEN
  3. TAMSULOSIN [Concomitant]
     Active Substance: TAMSULOSIN
  4. LUPRON DEPOT [Concomitant]
     Active Substance: LEUPROLIDE ACETATE
  5. ZOMETA [Concomitant]
     Active Substance: ZOLEDRONIC ACID
  6. LISINOPRIL [Concomitant]
     Active Substance: LISINOPRIL
  7. Vitamin D 25mcg [Concomitant]

REACTIONS (1)
  - Taste disorder [None]

NARRATIVE: CASE EVENT DATE: 20220211
